FAERS Safety Report 4523448-3 (Version None)
Quarter: 2004Q4

REPORT INFORMATION
  Report Type: 
  Country: None (occurrence: None)
  Receive Date: 20041210
  Receipt Date: 20041123
  Transmission Date: 20050328
  Serious: Yes (Life-Threatening, Hospitalization, Disabling)
  Sender: FDA-Public Use
  Company Number: BE-MERCK-0411BEL00038

PATIENT
  Age: 60 Year
  Sex: Female
  Weight: 54 kg

DRUGS (3)
  1. VIOXX [Suspect]
     Indication: NECK PAIN
     Route: 048
     Dates: start: 20000615, end: 20020726
  2. VALPROATE SODIUM [Concomitant]
     Indication: EPILEPSY
     Route: 048
  3. VALPROATE SODIUM [Concomitant]
     Route: 048

REACTIONS (1)
  - INTESTINAL INFARCTION [None]
